FAERS Safety Report 15105590 (Version 1)
Quarter: 2018Q3

REPORT INFORMATION
  Report Type: Spontaneous
  Country: FR (occurrence: FR)
  Receive Date: 20180704
  Receipt Date: 20180704
  Transmission Date: 20181010
  Serious: Yes (Hospitalization)
  Sender: FDA-Public Use
  Company Number: FR-ASTRAZENECA-2018SE84822

PATIENT
  Age: 38 Year
  Sex: Male

DRUGS (8)
  1. L THYROXIN [Concomitant]
     Active Substance: LEVOTHYROXINE SODIUM
     Indication: THYROIDECTOMY
     Route: 048
  2. PERFALGAN [Suspect]
     Active Substance: ACETAMINOPHEN
     Indication: BACK PAIN
     Route: 042
     Dates: start: 20171120, end: 20171120
  3. INEXIUM [Suspect]
     Active Substance: ESOMEPRAZOLE
     Indication: PROPHYLAXIS
     Route: 042
     Dates: start: 20171120, end: 20171120
  4. ACTISKENAN [Concomitant]
     Active Substance: MORPHINE SULFATE
     Route: 048
  5. TRAMADOL. [Concomitant]
     Active Substance: TRAMADOL
     Indication: BACK PAIN
     Route: 048
     Dates: end: 201711
  6. PROFENID [Suspect]
     Active Substance: KETOPROFEN
     Indication: BACK PAIN
     Route: 042
     Dates: start: 20171120, end: 20171120
  7. MORPHINE [Suspect]
     Active Substance: MORPHINE
     Indication: BACK PAIN
     Dosage: 3.0MG ONCE/SINGLE ADMINISTRATION
     Route: 042
     Dates: start: 20171120, end: 20171120
  8. MIOREL (THIOCOLCHICOSIDE) [Suspect]
     Active Substance: THIOCOLCHICOSIDE
     Indication: BACK PAIN
     Route: 048
     Dates: end: 20171120

REACTIONS (3)
  - Pruritus [Recovered/Resolved]
  - Erythema [Recovered/Resolved]
  - Anaphylactic reaction [Recovered/Resolved]

NARRATIVE: CASE EVENT DATE: 20171120
